FAERS Safety Report 4753854-3 (Version None)
Quarter: 2005Q3

REPORT INFORMATION
  Report Type: 
  Country: None (occurrence: None)
  Receive Date: 20050826
  Receipt Date: 20020521
  Transmission Date: 20060218
  Serious: Yes (Hospitalization)
  Sender: FDA-Public Use
  Company Number: FR-GLAXOSMITHKLINE-B0268986A

PATIENT
  Sex: Male

DRUGS (6)
  1. RETROVIR [Suspect]
     Indication: ANTIVIRAL PROPHYLAXIS
     Route: 048
     Dates: start: 20000124
  2. VIRAMUNE [Suspect]
     Indication: ANTIVIRAL PROPHYLAXIS
     Route: 048
     Dates: start: 20020125, end: 20020125
  3. COMBIVIR [Suspect]
     Indication: HIV INFECTION
     Dosage: 1TAB TWICE PER DAY
  4. VIRACEPT [Suspect]
     Indication: HIV INFECTION
  5. RETROVIR [Suspect]
     Dates: start: 20000124, end: 20000124
  6. VIRAMUNE [Suspect]
     Dosage: 2TAB PER DAY
     Dates: start: 20000124, end: 20000124

REACTIONS (9)
  - BLOOD KETONE BODY INCREASED [None]
  - DRUG EXPOSURE DURING PREGNANCY [None]
  - HYPERTRIGLYCERIDAEMIA [None]
  - HYPOKINESIA [None]
  - LABORATORY TEST ABNORMAL [None]
  - LACTATE PYRUVATE RATIO INCREASED [None]
  - METABOLIC DISORDER [None]
  - SICKLE CELL ANAEMIA [None]
  - SPEECH DISORDER DEVELOPMENTAL [None]
